FAERS Safety Report 4673491-9 (Version None)
Quarter: 2005Q2

REPORT INFORMATION
  Report Type: 
  Country: None (occurrence: None)
  Receive Date: 20050525
  Receipt Date: 20050510
  Transmission Date: 20051028
  Serious: Yes (Life-Threatening, Hospitalization, Other)
  Sender: FDA-Public Use
  Company Number: GB-GLAXOSMITHKLINE-B0381917A

PATIENT
  Age: 24 Year
  Sex: Female

DRUGS (1)
  1. PARACETAMOL [Suspect]
     Route: 048
     Dates: start: 19970101, end: 19970101

REACTIONS (2)
  - HEPATIC FAILURE [None]
  - OVERDOSE [None]
